FAERS Safety Report 24944948 (Version 3)
Quarter: 2025Q1

REPORT INFORMATION
  Report Type: Spontaneous
  Country: FR (occurrence: FR)
  Receive Date: 20250208
  Receipt Date: 20250227
  Transmission Date: 20250409
  Serious: Yes (Life-Threatening, Other)
  Sender: CELLTRION
  Company Number: None

PATIENT

DRUGS (17)
  1. RITUXIMAB [Suspect]
     Active Substance: RITUXIMAB
     Indication: Diffuse large B-cell lymphoma stage IV
     Route: 042
     Dates: start: 2021, end: 202301
  2. CYCLOPHOSPHAMIDE [Suspect]
     Active Substance: CYCLOPHOSPHAMIDE
     Indication: Diffuse large B-cell lymphoma stage IV
     Route: 042
     Dates: start: 2021, end: 202301
  3. DOXORUBICIN [Suspect]
     Active Substance: DOXORUBICIN
     Indication: Diffuse large B-cell lymphoma stage IV
     Route: 042
     Dates: start: 2021, end: 202301
  4. VINCRISTINE SULFATE [Suspect]
     Active Substance: VINCRISTINE SULFATE
     Indication: Diffuse large B-cell lymphoma stage IV
     Route: 042
     Dates: start: 2021, end: 202301
  5. PREDNISONE [Suspect]
     Active Substance: PREDNISONE
     Indication: Diffuse large B-cell lymphoma stage IV
     Route: 042
     Dates: start: 2021, end: 202301
  6. METHOTREXATE [Suspect]
     Active Substance: METHOTREXATE
     Indication: Diffuse large B-cell lymphoma stage IV
     Route: 042
     Dates: start: 2021, end: 202301
  7. FEBUXOSTAT [Suspect]
     Active Substance: FEBUXOSTAT
     Indication: Hyperuricaemia
     Route: 048
  8. FENOFIBRATE [Suspect]
     Active Substance: FENOFIBRATE
     Indication: Dyslipidaemia
     Route: 048
     Dates: end: 20240718
  9. LORATADINE [Suspect]
     Active Substance: LORATADINE
     Indication: Diffuse large B-cell lymphoma stage IV
     Route: 048
     Dates: end: 20240716
  10. DYMISTA [Suspect]
     Active Substance: AZELASTINE HYDROCHLORIDE\FLUTICASONE PROPIONATE
     Indication: Rhinitis allergic
     Route: 045
     Dates: end: 20240716
  11. ACETAMINOPHEN [Concomitant]
     Active Substance: ACETAMINOPHEN
     Indication: Abdominal pain
  12. MORPHINE [Concomitant]
     Active Substance: MORPHINE
     Indication: Dyspnoea
  13. MORPHINE [Concomitant]
     Active Substance: MORPHINE
     Indication: Anxiety
  14. MORPHINE [Concomitant]
     Active Substance: MORPHINE
     Indication: Fatigue
  15. MIDAZOLAM [Concomitant]
     Active Substance: MIDAZOLAM
     Indication: Fatigue
  16. MIDAZOLAM [Concomitant]
     Active Substance: MIDAZOLAM
     Indication: Dyspnoea
  17. MIDAZOLAM [Concomitant]
     Active Substance: MIDAZOLAM
     Indication: Anxiety

REACTIONS (8)
  - Interstitial lung disease [Not Recovered/Not Resolved]
  - Acute respiratory distress syndrome [Unknown]
  - Pneumomediastinum [Unknown]
  - Subcutaneous emphysema [Unknown]
  - Food intolerance [Unknown]
  - Rhinorrhoea [Unknown]
  - Herpes simplex [Unknown]
  - Off label use [Unknown]

NARRATIVE: CASE EVENT DATE: 20240716
